FAERS Safety Report 21391866 (Version 1)
Quarter: 2022Q3

REPORT INFORMATION
  Report Type: Spontaneous
  Country: DE (occurrence: DE)
  Receive Date: 20220929
  Receipt Date: 20220929
  Transmission Date: 20221026
  Serious: Yes (Hospitalization, Other)
  Sender: FDA-Public Use
  Company Number: DE-ADRED-07588-01

PATIENT
  Age: 54 Year
  Sex: Female
  Weight: 49 kg

DRUGS (20)
  1. INSULIN GLARGINE [Suspect]
     Active Substance: INSULIN GLARGINE
     Indication: Product used for unknown indication
     Dosage: UNK, DAILY 300 IE/3ML, 0-0-0-20
     Route: 058
  2. INSULIN ASPART [Suspect]
     Active Substance: INSULIN ASPART
     Indication: Product used for unknown indication
     Dosage: 300 IE/3ML, 6-6-6-0, FERTIGSPRITZEN
     Route: 058
  3. CANDESARTAN [Suspect]
     Active Substance: CANDESARTAN
     Indication: Product used for unknown indication
     Dosage: 15 MG, EACH EVENING
     Route: 048
  4. LERCANIDIPINE HYDROCHLORIDE [Suspect]
     Active Substance: LERCANIDIPINE HYDROCHLORIDE
     Indication: Product used for unknown indication
     Dosage: 10 MG, EACH MORNING (1-0-0-0)
     Route: 048
  5. CLONIDINE [Suspect]
     Active Substance: CLONIDINE
     Indication: Product used for unknown indication
     Dosage: 75 UG, BID (75 ?G, 1-0-1-0)
     Route: 048
  6. NEBIVOLOL [Suspect]
     Active Substance: NEBIVOLOL
     Indication: Product used for unknown indication
     Dosage: 5 MG, BID (1-0-1-0)
     Route: 048
  7. ALLOPURINOL [Concomitant]
     Active Substance: ALLOPURINOL
     Indication: Product used for unknown indication
     Dosage: 100 MG, EACH MORNING (100 MG, 1-0-0-0)
     Route: 048
  8. EPLERENONE [Concomitant]
     Active Substance: EPLERENONE
     Indication: Product used for unknown indication
     Dosage: 25 MG, EACH MORNING (25 MG, 1-0-0-0)
     Route: 048
  9. LEVOTHYROXINE SODIUM [Concomitant]
     Active Substance: LEVOTHYROXINE SODIUM
     Indication: Product used for unknown indication
     Dosage: 88 UG, EACH MORNING (88 ?G, 1-0-0-0)
     Route: 048
  10. PANTOPRAZOLE [Concomitant]
     Active Substance: PANTOPRAZOLE
     Indication: Product used for unknown indication
     Dosage: 40 MG, EACH MORNING (40 MG, 1-0-0-0)
     Route: 048
  11. SODIUM BICARBONATE [Concomitant]
     Active Substance: SODIUM BICARBONATE
     Indication: Product used for unknown indication
     Dosage: 1 G, TID (1 G, 1-1-1-0)
     Route: 048
  12. ATORVASTATIN [Concomitant]
     Active Substance: ATORVASTATIN
     Indication: Product used for unknown indication
     Dosage: 40 MG, DAILY (40 MG, 0-0-1-0)
     Route: 048
  13. SEVELAMER [Concomitant]
     Active Substance: SEVELAMER
     Indication: Product used for unknown indication
     Dosage: 1600 MG, TID (800 MG, 2-2-2-0)
     Route: 048
  14. ALFACALCIDOL [Concomitant]
     Active Substance: ALFACALCIDOL
     Indication: Product used for unknown indication
     Dosage: 0.25 UG, DAILY (0.25 ?G, 0-0-1-0)
     Route: 048
  15. TORSEMIDE [Concomitant]
     Active Substance: TORSEMIDE
     Indication: Product used for unknown indication
     Dosage: 200 MG, EACH MORNING (200 MG, 1-0-0-0)
     Route: 048
  16. CHOLECALCIFEROL [Concomitant]
     Active Substance: CHOLECALCIFEROL
     Indication: Product used for unknown indication
     Dosage: 20000 IE, SATURDAYS
     Route: 048
  17. EPOETIN ALFA [Concomitant]
     Active Substance: ERYTHROPOIETIN
     Indication: Product used for unknown indication
     Dosage: UNK UNK, WEEKLY (1/W), MONDAYS
     Route: 058
  18. CALCIUM ACETATE\MAGNESIUM CARBONATE [Concomitant]
     Active Substance: CALCIUM ACETATE\MAGNESIUM CARBONATE
     Indication: Product used for unknown indication
     Dosage: 1 DOSAGE FORM, TID (1-1-1-0)
     Route: 048
  19. SELENASE [SODIUM SELENITE] [Concomitant]
     Indication: Product used for unknown indication
     Dosage: 100 UG, EACH MORNING (100 ?G, 1-0-0-0)
     Route: 048
  20. BENFOTIAMINE\CYANOCOBALAMIN [Concomitant]
     Active Substance: BENFOTIAMINE\CYANOCOBALAMIN
     Indication: Product used for unknown indication
     Dosage: 1 DOSAGE FORM, EACH MORNING (1-0-0-0)
     Route: 048

REACTIONS (5)
  - Syncope [Unknown]
  - Fall [Unknown]
  - Pain [Unknown]
  - Therapeutic drug monitoring analysis incorrectly performed [Unknown]
  - Therapeutic drug monitoring analysis not performed [Unknown]
